FAERS Safety Report 20633218 (Version 4)
Quarter: 2022Q3

REPORT INFORMATION
  Report Type: Report from Study
  Country: US (occurrence: US)
  Receive Date: 20220324
  Receipt Date: 20220624
  Transmission Date: 20221027
  Serious: No
  Sender: FDA-Public Use
  Company Number: US-NOVARTISTESTPH-NVSC2022US067700

PATIENT
  Sex: Female

DRUGS (1)
  1. KISQALI [Suspect]
     Active Substance: RIBOCICLIB
     Indication: Product used for unknown indication
     Dosage: UNK
     Route: 048
     Dates: start: 20220226

REACTIONS (11)
  - Throat irritation [Unknown]
  - Dysphagia [Unknown]
  - Inappropriate schedule of product administration [Unknown]
  - Illness [Unknown]
  - Restless legs syndrome [Unknown]
  - Fungal infection [Unknown]
  - Red blood cell count decreased [Unknown]
  - Cough [Unknown]
  - Decreased appetite [Unknown]
  - White blood cell count decreased [Unknown]
  - Diarrhoea [Unknown]
